FAERS Safety Report 10420485 (Version 1)
Quarter: 2014Q3

REPORT INFORMATION
  Report Type: Spontaneous
  Country: US (occurrence: None)
  Receive Date: 20140708
  Receipt Date: 20140708
  Transmission Date: 20150326
  Serious: Yes (Other)
  Sender: FDA-Public Use
  Company Number: RB-65455-2014

PATIENT
  Age: 52 Year
  Sex: Female

DRUGS (2)
  1. GUAIFENESIN W/DEXTROMETHORPHAN 1200 MG [Suspect]
     Active Substance: DEXTROMETHORPHAN\GUAIFENESIN
     Indication: COUGH
     Route: 048
     Dates: start: 20140331
  2. MUCINEX DM [Suspect]
     Active Substance: DEXTROMETHORPHAN HYDROBROMIDE\GUAIFENESIN
     Indication: PRODUCT USED FOR UNKNOWN INDICATION
     Route: 048
     Dates: start: 20140403

REACTIONS (4)
  - Nausea [None]
  - Abdominal pain upper [None]
  - Somnolence [None]
  - Fatigue [None]

NARRATIVE: CASE EVENT DATE: 20140402
